FAERS Safety Report 23575333 (Version 1)
Quarter: 2024Q1

REPORT INFORMATION
  Report Type: Spontaneous
  Country: US (occurrence: US)
  Receive Date: 20240228
  Receipt Date: 20240228
  Transmission Date: 20240409
  Serious: Yes (Hospitalization, Other)
  Sender: FDA-Public Use
  Company Number: US-ROCHE-3508901

PATIENT
  Age: 63 Year
  Sex: Male
  Weight: 94.55 kg

DRUGS (24)
  1. VALGANCICLOVIR [Suspect]
     Active Substance: VALGANCICLOVIR
     Indication: Infection prophylaxis
     Dosage: 2 TABLETS IN MORNING ;ONGOING: YES?DAILY DOSE: 500 MILLIGRAM
     Route: 048
     Dates: start: 202312
  2. ACTEMRA [Suspect]
     Active Substance: TOCILIZUMAB
     Indication: Rheumatoid arthritis
     Dosage: 1 HOUR INFUSION; ONGOING: NO, LAST DOSE OF ACTEMRA WAS IN NOV 2023 OR DEC 2023
     Route: 042
     Dates: start: 202106
  3. ACTEMRA [Suspect]
     Active Substance: TOCILIZUMAB
     Indication: Rheumatoid lung
     Dosage: 1 HOUR INFUSION; ONGOING: NO, LAST DOSE OF ACTEMRA WAS IN NOV 2023 OR DEC 2023
     Route: 042
     Dates: start: 202106
  4. CELLCEPT [Suspect]
     Active Substance: MYCOPHENOLATE MOFETIL
     Indication: Prophylaxis against transplant rejection
     Dosage: NO
     Route: 048
     Dates: start: 201811, end: 201811
  5. CELLCEPT [Suspect]
     Active Substance: MYCOPHENOLATE MOFETIL
     Indication: Lung disorder
     Dosage: NO
     Route: 048
     Dates: start: 201811, end: 201811
  6. CELLCEPT [Suspect]
     Active Substance: MYCOPHENOLATE MOFETIL
     Indication: Prophylaxis against transplant rejection
     Dosage: NO
     Route: 048
     Dates: start: 201811
  7. CELLCEPT [Suspect]
     Active Substance: MYCOPHENOLATE MOFETIL
     Indication: Lung disorder
     Dosage: NO
     Route: 048
     Dates: start: 201811
  8. CELLCEPT [Suspect]
     Active Substance: MYCOPHENOLATE MOFETIL
     Indication: Prophylaxis against transplant rejection
     Dosage: 4 CAPSULES IN MORNING, 4 CAPSULES AT NIGHT, 2000 MG TOTAL A DAY; ONGOING: YES
     Route: 048
     Dates: start: 20231218
  9. CELLCEPT [Suspect]
     Active Substance: MYCOPHENOLATE MOFETIL
     Indication: Lung disorder
     Dosage: 4 CAPSULES IN MORNING, 4 CAPSULES AT NIGHT, 2000 MG TOTAL A DAY; ONGOING: YES
     Route: 048
     Dates: start: 20231218
  10. AZITHROMYCIN [Concomitant]
     Active Substance: AZITHROMYCIN
     Indication: Inflammation
  11. AZITHROMYCIN [Concomitant]
     Active Substance: AZITHROMYCIN
     Indication: Infection
  12. POSACONAZOLE [Concomitant]
     Active Substance: POSACONAZOLE
  13. BACTRIM [Concomitant]
     Active Substance: SULFAMETHOXAZOLE\TRIMETHOPRIM
  14. CALCIUM [Concomitant]
     Active Substance: CALCIUM
  15. VITAMIN D [Concomitant]
     Active Substance: VITAMIN D NOS
  16. VITAMIN D3 [Concomitant]
     Active Substance: CHOLECALCIFEROL
  17. CITALOPRAM [Concomitant]
     Active Substance: CITALOPRAM HYDROBROMIDE
  18. FERROUS SULFATE [Concomitant]
     Active Substance: FERROUS SULFATE
  19. MAGNESIUM OXIDE [Concomitant]
     Active Substance: MAGNESIUM OXIDE
  20. PANTOPRAZOLE [Concomitant]
     Active Substance: PANTOPRAZOLE
  21. ROSUVASTATIN [Concomitant]
     Active Substance: ROSUVASTATIN
  22. PREDNISONE [Concomitant]
     Active Substance: PREDNISONE
  23. TACROLIMUS [Concomitant]
     Active Substance: TACROLIMUS
  24. FUROSEMIDE [Concomitant]
     Active Substance: FUROSEMIDE

REACTIONS (8)
  - Hiatus hernia [Unknown]
  - Interstitial lung disease [Recovered/Resolved]
  - Hypotension [Not Recovered/Not Resolved]
  - Dizziness [Not Recovered/Not Resolved]
  - Fall [Unknown]
  - Dysuria [Recovered/Resolved]
  - Nausea [Recovered/Resolved]
  - Off label use [Unknown]

NARRATIVE: CASE EVENT DATE: 20231201
